FAERS Safety Report 13364018 (Version 1)
Quarter: 2017Q1

REPORT INFORMATION
  Report Type: Spontaneous
  Country: US (occurrence: US)
  Receive Date: 20170323
  Receipt Date: 20170323
  Transmission Date: 20170429
  Serious: Yes (Death, Hospitalization, Other)
  Sender: FDA-Public Use
  Company Number: US-PFIZER INC-2017127073

PATIENT
  Age: 31 Year
  Sex: Female

DRUGS (6)
  1. KETOROLAC TROMETHAMINE. [Suspect]
     Active Substance: KETOROLAC TROMETHAMINE
     Indication: PAIN
  2. KETOROLAC TROMETHAMINE. [Suspect]
     Active Substance: KETOROLAC TROMETHAMINE
     Indication: DIZZINESS
  3. KETOROLAC TROMETHAMINE. [Suspect]
     Active Substance: KETOROLAC TROMETHAMINE
     Indication: MYALGIA
  4. KETOROLAC TROMETHAMINE. [Suspect]
     Active Substance: KETOROLAC TROMETHAMINE
     Indication: ASTHENIA
  5. KETOROLAC TROMETHAMINE. [Suspect]
     Active Substance: KETOROLAC TROMETHAMINE
     Indication: PYREXIA
     Dosage: UNK
     Dates: start: 20150305
  6. KETOROLAC TROMETHAMINE. [Suspect]
     Active Substance: KETOROLAC TROMETHAMINE
     Indication: PAIN

REACTIONS (6)
  - Multiple organ dysfunction syndrome [Unknown]
  - Toxic epidermal necrolysis [Fatal]
  - Sepsis [Fatal]
  - Stevens-Johnson syndrome [Unknown]
  - Ventricular tachycardia [Unknown]
  - Pneumonia staphylococcal [Fatal]

NARRATIVE: CASE EVENT DATE: 201503
